FAERS Safety Report 9137482 (Version 2)
Quarter: 2013Q2

REPORT INFORMATION
  Report Type: Spontaneous
  Country: US (occurrence: US)
  Receive Date: 20130304
  Receipt Date: 20130403
  Transmission Date: 20140414
  Serious: Yes (Death)
  Sender: FDA-Public Use
  Company Number: US-ASTRAZENECA-2013SE13093

PATIENT
  Age: 8 Month
  Sex: Female
  Weight: 5.4 kg

DRUGS (6)
  1. SYNAGIS [Suspect]
     Indication: TRUNCUS ARTERIOSUS PERSISTENT
     Route: 030
     Dates: start: 20120910
  2. SYNAGIS [Suspect]
     Indication: ATRIAL SEPTAL DEFECT
     Route: 030
     Dates: start: 20120910
  3. SYNAGIS [Suspect]
     Indication: TRUNCUS ARTERIOSUS PERSISTENT
     Route: 030
     Dates: start: 20121105, end: 20130204
  4. SYNAGIS [Suspect]
     Indication: ATRIAL SEPTAL DEFECT
     Route: 030
     Dates: start: 20121105, end: 20130204
  5. SYNAGIS [Suspect]
     Indication: TRUNCUS ARTERIOSUS PERSISTENT
     Route: 030
     Dates: start: 20130204
  6. SYNAGIS [Suspect]
     Indication: ATRIAL SEPTAL DEFECT
     Route: 030
     Dates: start: 20130204

REACTIONS (1)
  - Death [Fatal]
